FAERS Safety Report 6172460-X (Version None)
Quarter: 2009Q2

REPORT INFORMATION
  Report Type: 
  Country: None (occurrence: None)
  Receive Date: 20090429
  Receipt Date: 20090420
  Transmission Date: 20091009
  Serious: Yes (Other)
  Sender: FDA-Public Use
  Company Number: ES-GENENTECH-281869

PATIENT
  Sex: Female

DRUGS (9)
  1. BEVACIZUMAB [Suspect]
     Indication: BREAST CANCER
     Dosage: 520 MG, Q2W
     Route: 042
     Dates: start: 20090219
  2. PACLITAXEL [Suspect]
     Indication: BREAST CANCER
     Dosage: 210 MG, Q2W
     Route: 042
     Dates: start: 20090219
  3. GEMCITABINE HCL [Suspect]
     Indication: BREAST CANCER
     Dosage: 2820 MG, Q2W
     Route: 042
     Dates: start: 20090219
  4. SIMVASTATIN [Concomitant]
     Indication: DRUG USE FOR UNKNOWN INDICATION
     Dosage: UNK
     Dates: start: 20021101
  5. ASPIRIN [Concomitant]
     Indication: DRUG USE FOR UNKNOWN INDICATION
  6. METHYLPREDNISOLONE 4MG TAB [Concomitant]
     Indication: DRUG USE FOR UNKNOWN INDICATION
     Dosage: UNK
     Dates: start: 19990101
  7. METHOTREXATE [Concomitant]
     Indication: DRUG USE FOR UNKNOWN INDICATION
     Dosage: UNK
     Dates: start: 19990101
  8. ISONIAZID [Concomitant]
     Indication: DRUG USE FOR UNKNOWN INDICATION
  9. PYRIDOXINE [Concomitant]
     Indication: DRUG USE FOR UNKNOWN INDICATION
     Dosage: UNK

REACTIONS (2)
  - ATRIAL FIBRILLATION [None]
  - DIZZINESS [None]
